FAERS Safety Report 13417200 (Version 3)
Quarter: 2017Q2

REPORT INFORMATION
  Report Type: Spontaneous
  Country: US (occurrence: US)
  Receive Date: 20170407
  Receipt Date: 20170407
  Transmission Date: 20170830
  Serious: No
  Sender: FDA-Public Use
  Company Number: US-CIPLA LTD.-2017US01458

PATIENT

DRUGS (6)
  1. AMLODIPINE [Suspect]
     Active Substance: AMLODIPINE BESYLATE
     Dosage: 10 MG, QD
     Route: 065
  2. TAMSULOSIN [Suspect]
     Active Substance: TAMSULOSIN
     Dosage: 0.4 MG, QD
     Route: 065
  3. KEFLEX [Suspect]
     Active Substance: CEPHALEXIN
     Dosage: UNK, 7 DAY COURSE
     Route: 065
  4. FUROSEMIDE. [Suspect]
     Active Substance: FUROSEMIDE
     Dosage: 40 MG, QD
     Route: 065
  5. LEVOTHYROXINE. [Suspect]
     Active Substance: LEVOTHYROXINE
     Dosage: 50 MCG, QD
     Route: 065
  6. WARFARIN [Suspect]
     Active Substance: WARFARIN
     Indication: DEEP VEIN THROMBOSIS
     Dosage: 3 MG, QD
     Route: 065
     Dates: start: 20161001

REACTIONS (2)
  - Product substitution issue [Unknown]
  - International normalised ratio fluctuation [Recovered/Resolved]
